FAERS Safety Report 6907337-2 (Version None)
Quarter: 2010Q3

REPORT INFORMATION
  Report Type: 
  Country: None (occurrence: None)
  Receive Date: 20100802
  Receipt Date: 20100721
  Transmission Date: 20110219
  Serious: Yes (Hospitalization)
  Sender: FDA-Public Use
  Company Number: 2010-2591

PATIENT
  Age: 66 Year
  Sex: Male

DRUGS (7)
  1. APO-GO AMPOULES (APO-GO) (APOMORPHINE HYDROCHLORIDE) (APOMORPHINE HYDR [Suspect]
     Indication: PARKINSON'S DISEASE
     Dosage: (FROM 7AM TO 6.30PM),SUBCUTANEOUS
     Route: 058
     Dates: start: 20080124, end: 20100301
  2. EXELON PATCH (RIVASTIGMINE TARTRATE) [Concomitant]
  3. METOPROLOL SUCCINATE [Concomitant]
  4. GASTROZEPIN [Concomitant]
  5. STALEVO (STALEVO) [Concomitant]
  6. AZILECT [Concomitant]
  7. NEUPRO [Concomitant]

REACTIONS (8)
  - DISEASE PROGRESSION [None]
  - DRUG INEFFECTIVE [None]
  - DYSARTHRIA [None]
  - GENERAL PHYSICAL HEALTH DETERIORATION [None]
  - INFECTION [None]
  - MEMORY IMPAIRMENT [None]
  - MUSCLE RIGIDITY [None]
  - PARKINSON'S DISEASE [None]
